FAERS Safety Report 5299188-2 (Version None)
Quarter: 2007Q2

REPORT INFORMATION
  Report Type: 
  Country: None (occurrence: None)
  Receive Date: 20070417
  Receipt Date: 20070410
  Transmission Date: 20071010
  Serious: Yes (Other)
  Sender: FDA-Public Use
  Company Number: HQWYE340112APR07

PATIENT
  Age: 51 Year
  Sex: Female

DRUGS (2)
  1. SIROLIMUS [Suspect]
     Dosage: UNSPECIFIED
  2. SIROLIMUS [Suspect]
     Dosage: UNSPECIFIED

REACTIONS (1)
  - ENCEPHALOPATHY [None]
